FAERS Safety Report 9530909 (Version 1)
Quarter: 2013Q2

REPORT INFORMATION
  Report Type: Spontaneous
  Country: US (occurrence: None)
  Receive Date: 20130418
  Receipt Date: 20130418
  Transmission Date: 20140414
  Serious: Yes (Hospitalization)
  Sender: FDA-Public Use
  Company Number: 1204USA02326

PATIENT
  Age: 42 Year
  Sex: Female

DRUGS (16)
  1. SINGULAIR (MONTELUKAST SODIUM) TABLET [Suspect]
     Indication: ASTHMA
     Route: 048
  2. ADVAIR (FLUTICASONE PROPIONATE (+) SALMETEROL XINAFOATE) [Concomitant]
  3. ALBUTEROL [Concomitant]
  4. ATROVENT (IPRATROPIUM BROMIDE) [Concomitant]
  5. COMBIVENT (ALBUTEROL SULFATE (+) IPRATROPIUM BROMIDE) [Concomitant]
  6. FLOVENT (FLUTICASONE PROPIONATE) [Concomitant]
  7. XOPENEX (LEVALBUTEROL HYDROCHLORIDE) [Concomitant]
  8. SEROQUEL (QUETIAPINE FUMARATE) [Concomitant]
  9. MECLIZINE [Concomitant]
  10. PROMETHAZINE [Concomitant]
  11. LORAZEPAM [Concomitant]
  12. ERYTHROMYCIN [Concomitant]
  13. POTASSIUM [Concomitant]
  14. PRILOSEC OTC (OMEPRAZOLE MAGNESIUM) [Concomitant]
  15. MK-0805 (FUROSEMIDE) [Concomitant]
  16. THYROID [Concomitant]

REACTIONS (3)
  - Convulsion [None]
  - Total lung capacity decreased [None]
  - Breast calcifications [None]
